FAERS Safety Report 21582664 (Version 1)
Quarter: 2022Q4

REPORT INFORMATION
  Report Type: Spontaneous
  Country: CH (occurrence: CH)
  Receive Date: 20221111
  Receipt Date: 20221111
  Transmission Date: 20230112
  Serious: Yes (Death, Other)
  Sender: FDA-Public Use
  Company Number: None

PATIENT
  Age: 73 Year
  Sex: Female

DRUGS (24)
  1. ENOXAPARIN SODIUM [Suspect]
     Active Substance: ENOXAPARIN SODIUM
     Dosage: 140 MG, Q12H
     Route: 058
     Dates: start: 202207, end: 20220817
  2. PHENPROCOUMON [Suspect]
     Active Substance: PHENPROCOUMON
     Dosage: 6 MG, QD, 17.8 DOSAGE 3MG / DAY AND NO MORE 6MG / DAY
     Dates: start: 20220816, end: 20220817
  3. RIFAMPICIN LABATEC [Concomitant]
     Dosage: 600 MG, QOD
     Route: 048
  4. TENORMIN [Concomitant]
     Active Substance: ATENOLOL
     Dosage: 1 DF, QD
     Route: 048
  5. TORASEMIDA SANDOZ [Concomitant]
     Dosage: 1 DF, QD
     Route: 048
  6. PANTOPRAZOLE SODIUM [Concomitant]
     Active Substance: PANTOPRAZOLE SODIUM
     Dosage: 1 DF, QD
     Route: 048
  7. CLORAZEPATE DIPOTASSIUM [Concomitant]
     Active Substance: CLORAZEPATE DIPOTASSIUM
     Dosage: 5 MG, QD
     Route: 048
  8. ATARAX [Concomitant]
     Active Substance: HYDROXYZINE HYDROCHLORIDE
     Dosage: 25 MG, QD
     Route: 048
  9. FLUOXETINE HYDROCHLORIDE [Concomitant]
     Active Substance: FLUOXETINE HYDROCHLORIDE
     Dosage: 20 MG, QD
     Route: 048
  10. LEVOFLOXACIN [Concomitant]
     Active Substance: LEVOFLOXACIN
     Dosage: 500 MG, QOD
     Route: 048
  11. RIFAMPIN [Concomitant]
     Active Substance: RIFAMPIN
     Dosage: UNK
  12. RIFAMPIN [Concomitant]
     Active Substance: RIFAMPIN
     Dosage: 17.8
     Dates: start: 202208
  13. RIFAMPIN [Concomitant]
     Active Substance: RIFAMPIN
     Dosage: 17.8 IT GOES TO 3MG/DAY
     Dates: start: 202208
  14. HUMAN RED BLOOD CELL [Concomitant]
     Active Substance: HUMAN RED BLOOD CELL
     Indication: Anaemia
     Dosage: 2 BAGS
     Dates: start: 202208
  15. HUMAN RED BLOOD CELL [Concomitant]
     Active Substance: HUMAN RED BLOOD CELL
     Indication: Haemorrhagic diathesis
  16. FRESH FROZEN PLASMA [Concomitant]
     Active Substance: HUMAN PLASMA
     Indication: Anaemia
     Dosage: 2 BAGS
     Dates: start: 202208
  17. FRESH FROZEN PLASMA [Concomitant]
     Active Substance: HUMAN PLASMA
     Indication: Haemorrhagic diathesis
  18. KONAKION [Concomitant]
     Active Substance: PHYTONADIONE
     Indication: Haemorrhagic diathesis
     Dosage: UNK
     Dates: start: 2022
  19. BERIPLEX [FACTOR II (PROTHROMBIN);FACTOR IX;FACTOR VII (PROCONVERTIN); [Concomitant]
     Indication: Haemorrhagic diathesis
     Dosage: UNK
     Dates: start: 202208
  20. TRANEXAMIC ACID [Concomitant]
     Active Substance: TRANEXAMIC ACID
     Indication: Haemorrhagic diathesis
     Dosage: UNK
     Dates: start: 202208
  21. NOREPINEPHRINE [Concomitant]
     Active Substance: NOREPINEPHRINE
     Dosage: UNK
     Dates: start: 202208
  22. NOREPINEPHRINE [Concomitant]
     Active Substance: NOREPINEPHRINE
     Indication: Haemodynamic instability
     Dosage: INCREMENTAL DOSES
     Dates: start: 202208
  23. VANCOMYCIN [Concomitant]
     Active Substance: VANCOMYCIN
     Indication: Evidence based treatment
     Dosage: UNK
     Dates: start: 202208
  24. MEROPENEM [Concomitant]
     Active Substance: MEROPENEM
     Indication: Evidence based treatment
     Dosage: UNK
     Dates: start: 202208

REACTIONS (3)
  - Multiple organ dysfunction syndrome [Fatal]
  - Shock haemorrhagic [Fatal]
  - Drug monitoring procedure incorrectly performed [Fatal]

NARRATIVE: CASE EVENT DATE: 20220808
